FAERS Safety Report 25359499 (Version 1)
Quarter: 2025Q2

REPORT INFORMATION
  Report Type: Spontaneous
  Country: US (occurrence: US)
  Receive Date: 20250526
  Receipt Date: 20250526
  Transmission Date: 20250716
  Serious: Yes (Hospitalization)
  Sender: AIPING PHARMACEUTICAL
  Company Number: US-AIPING-2025AILIT00065

PATIENT
  Age: 37 Year
  Sex: Female

DRUGS (7)
  1. SULFAMETHOXAZOLE AND TRIMETHOPRIM [Suspect]
     Active Substance: SULFAMETHOXAZOLE\TRIMETHOPRIM
     Indication: Urinary tract infection
     Route: 065
  2. PHENAZOPYRIDINE HYDROCHLORIDE [Suspect]
     Active Substance: PHENAZOPYRIDINE HYDROCHLORIDE
     Indication: Product used for unknown indication
     Route: 065
  3. OSILODROSTAT [Concomitant]
     Active Substance: OSILODROSTAT
     Indication: Cushing^s syndrome
     Route: 065
  4. LIDOCAINE [Concomitant]
     Active Substance: LIDOCAINE
     Route: 065
  5. APIXABAN [Concomitant]
     Active Substance: APIXABAN
     Route: 065
  6. APIXABAN [Concomitant]
     Active Substance: APIXABAN
  7. FLUOXETINE [Concomitant]
     Active Substance: FLUOXETINE HYDROCHLORIDE
     Indication: Depression
     Route: 065

REACTIONS (1)
  - Sulphaemoglobinaemia [Recovered/Resolved]
